FAERS Safety Report 7808524-1 (Version None)
Quarter: 2011Q4

REPORT INFORMATION
  Report Type: 
  Country: None (occurrence: None)
  Receive Date: 20111012
  Receipt Date: 20110720
  Transmission Date: 20120403
  Serious: No
  Sender: FDA-Public Use
  Company Number: US-MYLANLABS-2011S1015118

PATIENT
  Age: 65 Year
  Sex: Female

DRUGS (7)
  1. PROZAC [Concomitant]
  2. METFORMIN HCL [Suspect]
     Indication: DIABETES MELLITUS
     Route: 048
     Dates: start: 20110616
  3. ATIVAN [Concomitant]
  4. DYAZIDE [Concomitant]
  5. PRAVACHOL [Concomitant]
  6. NORVASC [Concomitant]
  7. COREG [Concomitant]

REACTIONS (3)
  - DRUG INEFFECTIVE [None]
  - BLOOD GLUCOSE INCREASED [None]
  - MEDICATION RESIDUE [None]
